FAERS Safety Report 6767942-3 (Version None)
Quarter: 2010Q2

REPORT INFORMATION
  Report Type: 
  Country: None (occurrence: None)
  Receive Date: 20100610
  Receipt Date: 20100603
  Transmission Date: 20101027
  Serious: Yes (Hospitalization)
  Sender: FDA-Public Use
  Company Number: 100892

PATIENT
  Age: 20 Year
  Sex: Female

DRUGS (1)
  1. METROTREXATE INJ. USP 50MG/2ML-BEDFORD LABS, INC. [Suspect]
     Indication: ACUTE LYMPHOCYTIC LEUKAEMIA
     Dosage: 15MG/ DAY 3 AND 11 / INTRATHECAL
     Route: 039
     Dates: start: 20081001

REACTIONS (8)
  - ABNORMAL BEHAVIOUR [None]
  - CEREBRAL HAEMORRHAGE [None]
  - CNS VENTRICULITIS [None]
  - EPILEPSY [None]
  - HYDROCEPHALUS [None]
  - LEARNING DISORDER [None]
  - MEMORY IMPAIRMENT [None]
  - SOMNOLENCE [None]
